FAERS Safety Report 8812672 (Version 1)
Quarter: 2012Q4

REPORT INFORMATION
  Report Type: 
  Country: DE (occurrence: DE)
  Receive Date: 20120927
  Receipt Date: 20120927
  Transmission Date: 20130627
  Serious: Yes (Hospitalization)
  Sender: FDA-Public Use
  Company Number: GXKR2012DE003060

PATIENT
  Age: 78 Year
  Sex: Female
  Weight: 82 kg

DRUGS (5)
  1. MINOCYCLINE [Suspect]
     Indication: LYME DISEASE
     Dosage: 200 mg, QD
     Route: 048
     Dates: start: 20120201, end: 20120214
  2. QUENSYL [Suspect]
     Indication: LYME DISEASE
     Dosage: 400 mg/day
     Route: 048
     Dates: start: 20120201, end: 20120214
  3. VITAMIN B COMPLEX [Concomitant]
     Dosage: 1 DF/day
  4. AZATHIOPRINE [Concomitant]
     Dosage: 25 mg, QD
  5. ONBREZ BREEZHALER [Concomitant]
     Dosage: 300 ug, QD

REACTIONS (2)
  - Pustular psoriasis [Recovering/Resolving]
  - Transaminases increased [Recovering/Resolving]
